FAERS Safety Report 25740260 (Version 2)
Quarter: 2025Q4

REPORT INFORMATION
  Report Type: Spontaneous
  Country: US (occurrence: US)
  Receive Date: 20250829
  Receipt Date: 20251015
  Transmission Date: 20260118
  Serious: No
  Sender: NOVARTIS
  Company Number: US-002147023-NVSC2025US131266

PATIENT
  Age: 15 Year
  Sex: Male

DRUGS (1)
  1. COSENTYX [Suspect]
     Active Substance: SECUKINUMAB
     Indication: Off label use
     Dosage: 300 MG, QMO
     Route: 042
     Dates: start: 2023

REACTIONS (3)
  - Hidradenitis [Unknown]
  - Condition aggravated [Unknown]
  - Pathergy reaction [Unknown]

NARRATIVE: CASE EVENT DATE: 20240101
